FAERS Safety Report 5098673-6 (Version None)
Quarter: 2006Q3

REPORT INFORMATION
  Report Type: 
  Country: None (occurrence: None)
  Receive Date: 20060905
  Receipt Date: 20060823
  Transmission Date: 20061208
  Serious: Yes (Disabling)
  Sender: FDA-Public Use
  Company Number: 227934

PATIENT
  Sex: Female

DRUGS (5)
  1. RAPTIVA [Suspect]
     Indication: PSORIASIS
     Dosage: 1.5 ML, 1/WEEK, SUBCUTANEOUS
     Route: 058
     Dates: start: 20060705
  2. ATENOLOL [Concomitant]
  3. HYDROCHLOROTHIAZIDE [Concomitant]
  4. EFFEXOR XR [Concomitant]
  5. VITAMINS (VITAMINS NOS) [Concomitant]

REACTIONS (6)
  - ABASIA [None]
  - ACNE [None]
  - BACK PAIN [None]
  - INFLUENZA LIKE ILLNESS [None]
  - NAUSEA [None]
  - VAGINAL HAEMORRHAGE [None]
